FAERS Safety Report 10206290 (Version 2)
Quarter: 2015Q2

REPORT INFORMATION
  Report Type: Report from Study
  Country: AU (occurrence: AU)
  Receive Date: 20140530
  Receipt Date: 20150403
  Transmission Date: 20150821
  Serious: Yes (Death)
  Sender: FDA-Public Use
  Company Number: AU-ROCHE-1410538

PATIENT
  Age: 86 Year
  Sex: Female
  Weight: 57 kg

DRUGS (4)
  1. RANIBIZUMAB [Suspect]
     Active Substance: RANIBIZUMAB
     Route: 050
     Dates: start: 20140311
  2. RANIBIZUMAB [Suspect]
     Active Substance: RANIBIZUMAB
     Indication: AGE-RELATED MACULAR DEGENERATION
     Dosage: RECEIVED MOST RECENT DOSE ON 11/MAR/2014.
     Route: 050
     Dates: start: 20111107
  3. MACU-VISION (AUSTRALIA) [Concomitant]
     Indication: AGE-RELATED MACULAR DEGENERATION
     Route: 048
     Dates: start: 20110809
  4. LYRICA [Concomitant]
     Active Substance: PREGABALIN
     Indication: PAIN MANAGEMENT
     Route: 065
     Dates: start: 2013, end: 2013

REACTIONS (1)
  - Cerebrovascular accident [Fatal]

NARRATIVE: CASE EVENT DATE: 20140424
